FAERS Safety Report 23519681 (Version 5)
Quarter: 2024Q3

REPORT INFORMATION
  Report Type: Report from Study
  Country: GB (occurrence: GB)
  Receive Date: 20240213
  Receipt Date: 20240711
  Transmission Date: 20241016
  Serious: Yes (Other)
  Sender: SANDOZ
  Company Number: GB-002147023-NVSC2021GB106538

PATIENT
  Sex: Male

DRUGS (3)
  1. OMNITROPE [Suspect]
     Active Substance: SOMATROPIN
     Indication: Growth hormone deficiency
     Dosage: 0.3 MG, QHS
     Route: 058
     Dates: start: 201807
  2. OMNITROPE [Suspect]
     Active Substance: SOMATROPIN
     Dosage: 0.3 MG, QD
     Route: 058
  3. OMNITROPE [Suspect]
     Active Substance: SOMATROPIN
     Dosage: 0.3 MG, OTHER (NIGHTLY AS DIRECTED)
     Route: 058

REACTIONS (26)
  - Suicidal ideation [Unknown]
  - Emotional disorder [Unknown]
  - Anger [Not Recovered/Not Resolved]
  - Borderline personality disorder [Unknown]
  - Malaise [Unknown]
  - Depression [Unknown]
  - Illness [Unknown]
  - Nausea [Unknown]
  - Poor quality sleep [Unknown]
  - Mental disorder [Not Recovered/Not Resolved]
  - Dizziness [Unknown]
  - Tremor [Unknown]
  - Post-traumatic stress disorder [Unknown]
  - Withdrawal syndrome [Unknown]
  - Feeling abnormal [Unknown]
  - Loss of personal independence in daily activities [Unknown]
  - Mood altered [Unknown]
  - Anxiety [Not Recovered/Not Resolved]
  - Stress [Unknown]
  - Mood swings [Unknown]
  - Tooth disorder [Unknown]
  - Fatigue [Unknown]
  - Headache [Unknown]
  - Incorrect dose administered [Unknown]
  - Product use issue [Unknown]
  - Overdose [Unknown]
